FAERS Safety Report 4312827-5 (Version None)
Quarter: 2004Q1

REPORT INFORMATION
  Report Type: 
  Country: None (occurrence: None)
  Receive Date: 20040304
  Receipt Date: 20040220
  Transmission Date: 20041129
  Serious: Yes (Hospitalization)
  Sender: FDA-Public Use
  Company Number: 2003-BP-06186BP

PATIENT
  Age: 62 Year
  Sex: Male

DRUGS (13)
  1. MICARDIS [Suspect]
     Indication: CEREBROVASCULAR ACCIDENT
     Route: 048
     Dates: start: 20030606, end: 20030815
  2. MICARDIS [Suspect]
     Indication: PROPHYLAXIS
     Route: 048
     Dates: start: 20030606, end: 20030815
  3. RAMIPRIL [Suspect]
     Indication: CEREBROVASCULAR ACCIDENT
     Route: 048
     Dates: start: 20030606, end: 20030815
  4. RAMIPRIL [Suspect]
     Indication: PROPHYLAXIS
     Route: 048
     Dates: start: 20030606, end: 20030815
  5. ALDACTONE [Suspect]
     Dates: end: 20030101
  6. THIAZID(NR) [Suspect]
     Dates: end: 20030101
  7. AMLODIPINE BESYLATE [Concomitant]
  8. METOPROLOL (METOPROLOL)(NR) [Concomitant]
  9. LIPONACID(NR) [Concomitant]
  10. TORASEMIDE(TORASEMIDE)(NR) [Concomitant]
  11. GLIMEPIRIDE(NR) [Concomitant]
  12. ATORVASTATIN(NR) [Concomitant]
  13. NITRATE(NR) [Concomitant]

REACTIONS (1)
  - RENAL FAILURE ACUTE [None]
